FAERS Safety Report 5264031-4 (Version None)
Quarter: 2007Q1

REPORT INFORMATION
  Report Type: 
  Country: None (occurrence: None)
  Receive Date: 20070313
  Receipt Date: 20070226
  Transmission Date: 20070707
  Serious: Yes (Hospitalization)
  Sender: FDA-Public Use
  Company Number: PR-AMGEN-US212812

PATIENT

DRUGS (3)
  1. NEULASTA [Suspect]
     Indication: CHEMOTHERAPY
     Route: 058
     Dates: start: 20061114
  2. OXALIPLATIN [Suspect]
     Route: 042
     Dates: start: 20061113
  3. GEMCITABINE [Suspect]
     Dates: start: 20061113

REACTIONS (8)
  - ANAEMIA [None]
  - BRONCHITIS [None]
  - CHRONIC OBSTRUCTIVE PULMONARY DISEASE [None]
  - COUGH [None]
  - DYSPNOEA [None]
  - HAEMATOCHEZIA [None]
  - PYREXIA [None]
  - THROMBOCYTOPENIA [None]
